FAERS Safety Report 13861892 (Version 1)
Quarter: 2017Q3

REPORT INFORMATION
  Report Type: Spontaneous
  Country: CA (occurrence: CA)
  Receive Date: 20170811
  Receipt Date: 20170811
  Transmission Date: 20171127
  Serious: Yes (Death)
  Sender: FDA-Public Use
  Company Number: CA-B.I. PHARMACEUTICALS,INC./RIDGEFIELD-2017-BI-044395

PATIENT
  Age: 72 Year
  Sex: Male
  Weight: 69 kg

DRUGS (1)
  1. PRADAX [Suspect]
     Active Substance: DABIGATRAN ETEXILATE MESYLATE
     Indication: PRODUCT USED FOR UNKNOWN INDICATION
     Route: 065

REACTIONS (14)
  - Hepatic function abnormal [Fatal]
  - Intensive care [Fatal]
  - Respiratory distress [Fatal]
  - General physical health deterioration [Fatal]
  - Hepatitis fulminant [Fatal]
  - Ventricular tachycardia [Fatal]
  - Circulatory collapse [Fatal]
  - Hypoalbuminaemia [Fatal]
  - Lymphadenopathy mediastinal [Fatal]
  - Cholelithiasis [Fatal]
  - Hilar lymphadenopathy [Fatal]
  - Generalised oedema [Fatal]
  - Thrombocytopenia [Fatal]
  - Renal impairment [Fatal]
